FAERS Safety Report 8892132 (Version 1)
Quarter: 2012Q4

REPORT INFORMATION
  Report Type: 
  Country: US (occurrence: US)
  Receive Date: 20121107
  Receipt Date: 20121107
  Transmission Date: 20130627
  Serious: No
  Sender: FDA-Public Use
  Company Number: US-AMGEN-USASP2011058790

PATIENT
  Age: 38 Year
  Sex: Female

DRUGS (4)
  1. CIPROFLAXINA HC LAZAR [Concomitant]
     Dosage: UNK
  2. ANTIBIOTIC /00011701/ [Concomitant]
     Dosage: UNK
  3. HUMIRA [Concomitant]
     Dosage: UNK
  4. ENBREL [Suspect]
     Indication: RHEUMATOID ARTHRITIS
     Dosage: 50 mg, qwk
     Dates: start: 20081015, end: 201107

REACTIONS (4)
  - Therapeutic response decreased [Unknown]
  - Rheumatoid arthritis [Unknown]
  - Upper respiratory tract infection [Unknown]
  - H1N1 influenza [Recovered/Resolved]
